FAERS Safety Report 11137909 (Version 2)
Quarter: 2015Q4

REPORT INFORMATION
  Report Type: Spontaneous
  Country: FI (occurrence: FI)
  Receive Date: 20150526
  Receipt Date: 20151022
  Transmission Date: 20160304
  Serious: Yes (Hospitalization)
  Sender: FDA-Public Use
  Company Number: FI-JNJFOC-20150507563

PATIENT
  Age: 65 Year
  Sex: Female

DRUGS (1)
  1. XEPLION [Suspect]
     Active Substance: PALIPERIDONE PALMITATE
     Indication: SCHIZOPHRENIA
     Route: 030

REACTIONS (10)
  - Paralysis [Unknown]
  - Mental disorder [Unknown]
  - Treatment noncompliance [Unknown]
  - Impaired self-care [Unknown]
  - Psychotic disorder [Unknown]
  - Pneumonia [Unknown]
  - General physical health deterioration [Unknown]
  - Bradycardia [Unknown]
  - Urinary tract infection [Unknown]
  - Swelling face [Unknown]
